FAERS Safety Report 20343999 (Version 3)
Quarter: 2022Q1

REPORT INFORMATION
  Report Type: Spontaneous
  Country: DE (occurrence: None)
  Receive Date: 20220118
  Receipt Date: 20220301
  Transmission Date: 20220423
  Serious: Yes (Hospitalization, Other)
  Sender: FDA-Public Use
  Company Number: DE-ROCHE-2999261

PATIENT
  Age: 89 Year
  Sex: Female
  Weight: 52 kg

DRUGS (19)
  1. AVASTIN [Suspect]
     Active Substance: BEVACIZUMAB
     Indication: Neovascular age-related macular degeneration
     Route: 050
     Dates: start: 20211124
  2. AVASTIN [Suspect]
     Active Substance: BEVACIZUMAB
     Route: 050
     Dates: start: 20211222
  3. PANTOPRAZOLE SODIUM [Concomitant]
     Active Substance: PANTOPRAZOLE SODIUM
     Dosage: AT 6 A.M
  4. NEPRESOL [Concomitant]
     Dosage: AT 6 A.M AND AT 10 P.M.
     Dates: start: 20210624
  5. URAPIDIL [Concomitant]
     Active Substance: URAPIDIL
     Dosage: AT 6 A.M., UP TO 3X 30 MG MAXIMUM
  6. FELODIPINE [Concomitant]
     Active Substance: FELODIPINE
     Dosage: AT 7 A.M.
  7. FELODIPINE [Concomitant]
     Active Substance: FELODIPINE
     Dosage: AT 7 A.M. AND AT 4:30 P.M.
     Dates: start: 20210601
  8. TORSEMIDE [Concomitant]
     Active Substance: TORSEMIDE
     Dosage: AT 7 A.M.
     Dates: start: 20210612
  9. FERRIC MALTOL [Concomitant]
     Active Substance: FERRIC MALTOL
     Dosage: AT 7 A.M.
  10. FERRIC MALTOL [Concomitant]
     Active Substance: FERRIC MALTOL
     Dosage: AT 4:30 P.M.
  11. JARDIANCE [Concomitant]
     Active Substance: EMPAGLIFLOZIN
     Indication: Diabetes mellitus
     Dosage: AT 8 A.M
  12. HEPARIN [Concomitant]
     Active Substance: HEPARIN SODIUM
     Dosage: AT 8 A.M. AND AT 8:30 P.M.
  13. VIGANTOL [Concomitant]
     Dosage: AT 12 P.M. AND AT 3 P.M.
  14. ASPIRIN [Concomitant]
     Active Substance: ASPIRIN
     Dosage: AT 1 P.M.
     Route: 065
  15. MOXONIDINE [Concomitant]
     Active Substance: MOXONIDINE
     Dosage: AT 3 P.M. AND 10 P.M.
  16. ZINC [Concomitant]
     Active Substance: ZINC
     Dosage: AT 3 P.M.
  17. MARCUMAR [Concomitant]
     Active Substance: PHENPROCOUMON
     Dosage: AT 6 P.M., VARIABLY
  18. MAGNESIUM [Concomitant]
     Active Substance: MAGNESIUM
     Dosage: AT 10 P.M.
  19. GLIVEC [Concomitant]
     Active Substance: IMATINIB MESYLATE
     Indication: Chronic myeloid leukaemia
     Dosage: AT 10 P.M.
     Dates: start: 20201124

REACTIONS (6)
  - Pulmonary oedema [Not Recovered/Not Resolved]
  - Apnoea [Not Recovered/Not Resolved]
  - Thoracic cavity drainage [Not Recovered/Not Resolved]
  - Off label use [Unknown]
  - Atrial fibrillation [Recovered/Resolved]
  - Blood pressure abnormal [Recovered/Resolved]

NARRATIVE: CASE EVENT DATE: 20211124
